FAERS Safety Report 13945481 (Version 4)
Quarter: 2017Q4

REPORT INFORMATION
  Report Type: Spontaneous
  Country: US (occurrence: US)
  Receive Date: 20170907
  Receipt Date: 20171206
  Transmission Date: 20180320
  Serious: No
  Sender: FDA-Public Use
  Company Number: US-PFIZER INC-2017387904

PATIENT
  Age: 47 Year
  Sex: Female
  Weight: 78 kg

DRUGS (9)
  1. ESTRING [Suspect]
     Active Substance: ESTRADIOL
     Indication: VULVOVAGINAL PAIN
     Dosage: 2 MG, EVERY 3 MONTHS (90 DAYS)
     Dates: start: 2015
  2. PROGESTERONE. [Concomitant]
     Active Substance: PROGESTERONE
     Indication: MENOPAUSE
     Dosage: 200 MG, 1X/DAY (EVENING BEFORE BED)/ (Q DAY)
     Route: 048
     Dates: start: 20160906
  3. ESTRADIOL. [Concomitant]
     Active Substance: ESTRADIOL
     Indication: VULVOVAGINAL PAIN
  4. ESTRING [Suspect]
     Active Substance: ESTRADIOL
     Indication: INSOMNIA
  5. LEVOTHYROXINE. [Concomitant]
     Active Substance: LEVOTHYROXINE
     Indication: HYPOTHYROIDISM
     Dosage: 150 UG, 1X/DAY
  6. PROGESTERONE. [Concomitant]
     Active Substance: PROGESTERONE
     Indication: VULVOVAGINAL PAIN
  7. ZEGERID [Concomitant]
     Active Substance: OMEPRAZOLE\SODIUM BICARBONATE
     Indication: GASTROOESOPHAGEAL REFLUX DISEASE
     Dosage: 40 MG, 1X/DAY
  8. ESTRING [Suspect]
     Active Substance: ESTRADIOL
     Indication: MENOPAUSE
     Dosage: 1 DF, EVERY 3 MONTHS; (1 ESTRING PER VAGINA Q 3 MO)
     Route: 067
     Dates: start: 20121204
  9. ESTRADIOL. [Concomitant]
     Active Substance: ESTRADIOL
     Indication: MENOPAUSE
     Dosage: 2 MG, 1X/DAY; (Q DAY)
     Route: 048
     Dates: start: 20160906

REACTIONS (5)
  - Poor quality sleep [Not Recovered/Not Resolved]
  - Product quality issue [Not Recovered/Not Resolved]
  - Drug ineffective [Not Recovered/Not Resolved]
  - Insomnia [Not Recovered/Not Resolved]
  - Condition aggravated [Not Recovered/Not Resolved]

NARRATIVE: CASE EVENT DATE: 2015
